FAERS Safety Report 6265953-8 (Version None)
Quarter: 2009Q3

REPORT INFORMATION
  Report Type: 
  Country: None (occurrence: None)
  Receive Date: 20090709
  Receipt Date: 20090709
  Transmission Date: 20100115
  Serious: No
  Sender: FDA-Public Use
  Company Number: None

PATIENT
  Age: 35 Year
  Sex: Female
  Weight: 81.6475 kg

DRUGS (1)
  1. PAXIL [Suspect]
     Indication: DEPRESSION
     Dosage: 10 MG DAILY PO
     Route: 048
     Dates: start: 20061001, end: 20090603

REACTIONS (5)
  - DEPRESSION [None]
  - FEELING ABNORMAL [None]
  - MUSCLE SPASMS [None]
  - RESTLESSNESS [None]
  - VISION BLURRED [None]
